FAERS Safety Report 24313054 (Version 1)
Quarter: 2024Q3

REPORT INFORMATION
  Report Type: Spontaneous
  Country: US (occurrence: US)
  Receive Date: 20240912
  Receipt Date: 20240912
  Transmission Date: 20241016
  Serious: Yes (Other)
  Sender: BAYER
  Company Number: US-BAYER-2024A129927

PATIENT
  Age: 51 Year
  Sex: Male

DRUGS (3)
  1. KOVALTRY [Suspect]
     Active Substance: ANTIHEMOPHILIC FACTOR, HUMAN RECOMBINANT
     Indication: Factor VIII deficiency
     Dosage: KOVALTRY 3000IU: INFUSE ~3300 UNITS, PRN
     Route: 042
     Dates: start: 202309
  2. KOVALTRY [Suspect]
     Active Substance: ANTIHEMOPHILIC FACTOR, HUMAN RECOMBINANT
     Indication: Factor VIII deficiency
     Dosage: UNK
  3. HEMLIBRA [Concomitant]
     Active Substance: EMICIZUMAB-KXWH

REACTIONS (1)
  - Renal colic [None]
